FAERS Safety Report 6145070-8 (Version None)
Quarter: 2009Q2

REPORT INFORMATION
  Report Type: 
  Country: None (occurrence: None)
  Receive Date: 20090401
  Receipt Date: 20090401
  Transmission Date: 20091009
  Serious: Yes (Hospitalization)
  Sender: FDA-Public Use
  Company Number: None

PATIENT
  Age: 81 Year
  Sex: Female
  Weight: 54 kg

DRUGS (14)
  1. WARFARIN SODIUM [Suspect]
     Indication: ATRIAL FIBRILLATION
     Dosage: 4 MG/3 MG DAILY PO PRIOR TO ADMISSION
     Route: 048
  2. ASPIRIN [Suspect]
     Indication: CORONARY ARTERY DISEASE
     Dosage: 81 MG DAILY PO PRIOR TO ADMISSION
     Route: 048
  3. LEVOFLOXACIN [Concomitant]
  4. METRONIDAZOLE [Concomitant]
  5. LEVOTHYROXINE SODIUM [Concomitant]
  6. METOPROLOL SUCCINATE [Concomitant]
  7. CALCIUM GLUCONATE [Concomitant]
  8. PANTOPRAZOLE [Concomitant]
  9. OLANAZEPINE [Concomitant]
  10. CARBIDOPA AND LEVODOPA [Concomitant]
  11. CLONAZEPAM [Concomitant]
  12. POLYCARBOPHIL [Concomitant]
  13. FLUDROCORTISONE [Concomitant]
  14. ALBUTEROL/IPRATROPIUM NEBULIZED SOLN [Concomitant]

REACTIONS (8)
  - CEREBRAL HAEMORRHAGE [None]
  - DEHYDRATION [None]
  - DYSPHAGIA [None]
  - FALL [None]
  - HYPERNATRAEMIA [None]
  - INTERNATIONAL NORMALISED RATIO INCREASED [None]
  - PNEUMONIA ASPIRATION [None]
  - REFUSAL OF TREATMENT BY RELATIVE [None]
